FAERS Safety Report 8617060-4 (Version None)
Quarter: 2012Q3

REPORT INFORMATION
  Report Type: 
  Country: None (occurrence: None)
  Receive Date: 20120823
  Receipt Date: 20120815
  Transmission Date: 20120928
  Serious: No
  Sender: FDA-Public Use
  Company Number: US-009507513-1208USA008271

PATIENT

DRUGS (1)
  1. SAPHRIS [Suspect]
     Dosage: 5 MG, BID
     Route: 060

REACTIONS (1)
  - AKINAESTHESIA [None]
